FAERS Safety Report 4527888-8 (Version None)
Quarter: 2004Q4

REPORT INFORMATION
  Report Type: 
  Country: None (occurrence: None)
  Receive Date: 20041123
  Receipt Date: 20031208
  Transmission Date: 20050328
  Serious: Yes (Other)
  Sender: FDA-Public Use
  Company Number: HQWYE489409DEC03

PATIENT
  Age: 36 Year
  Sex: Female
  Weight: 67.19 kg

DRUGS (5)
  1. ZOSYN [Suspect]
     Indication: OSTEOMYELITIS
     Dosage: 4.5 G 1X PER 8 HR, INTRAVENOUS
     Route: 042
     Dates: start: 20031107, end: 20031124
  2. MOTRIN [Concomitant]
  3. NOVOLOG [Concomitant]
  4. LANTUS [Concomitant]
  5. VICODIN [Concomitant]

REACTIONS (4)
  - CHILLS [None]
  - NEUTROPENIA [None]
  - PLATELET COUNT DECREASED [None]
  - PYREXIA [None]
